FAERS Safety Report 10886789 (Version 3)
Quarter: 2017Q2

REPORT INFORMATION
  Report Type: Spontaneous
  Country: US (occurrence: US)
  Receive Date: 20150304
  Receipt Date: 20170508
  Transmission Date: 20170829
  Serious: Yes (Hospitalization, Other)
  Sender: FDA-Public Use
  Company Number: US-SHIRE-US201501663

PATIENT
  Sex: Female
  Weight: 58.96 kg

DRUGS (5)
  1. ADDERALL [Suspect]
     Active Substance: AMPHETAMINE ASPARTATE\AMPHETAMINE SULFATE\DEXTROAMPHETAMINE SACCHARATE\DEXTROAMPHETAMINE SULFATE
     Indication: PSYCHOMOTOR HYPERACTIVITY
     Dosage: UNK, UNKNOWN
     Route: 065
  2. PREVACID [Concomitant]
     Active Substance: LANSOPRAZOLE
     Indication: PRODUCT USED FOR UNKNOWN INDICATION
     Dosage: UNK, UNKNOWN
     Route: 065
     Dates: start: 1997, end: 2017
  3. ADDERALL XR [Suspect]
     Active Substance: AMPHETAMINE ASPARTATE\AMPHETAMINE SULFATE\DEXTROAMPHETAMINE SACCHARATE\DEXTROAMPHETAMINE SULFATE
     Indication: ATTENTION DEFICIT/HYPERACTIVITY DISORDER
  4. ADDERALL XR [Suspect]
     Active Substance: AMPHETAMINE ASPARTATE\AMPHETAMINE SULFATE\DEXTROAMPHETAMINE SACCHARATE\DEXTROAMPHETAMINE SULFATE
     Indication: PSYCHOMOTOR HYPERACTIVITY
     Dosage: UNK, 1X/DAY:QD
     Route: 048
     Dates: start: 2012, end: 201502
  5. ELAVIL [Concomitant]
     Active Substance: AMITRIPTYLINE HYDROCHLORIDE
     Indication: ANXIETY
     Dosage: UNK, UNKNOWN
     Route: 065
     Dates: start: 2003

REACTIONS (25)
  - Poisoning [Recovered/Resolved]
  - Bipolar disorder [Recovered/Resolved]
  - Visual impairment [Recovered/Resolved]
  - Product tampering [Unknown]
  - Agitation [Recovering/Resolving]
  - Mental disorder [Recovered/Resolved]
  - Tachyphrenia [Recovering/Resolving]
  - Intentional product misuse [Recovered/Resolved]
  - Insomnia [Recovering/Resolving]
  - Apparent death [Unknown]
  - Intentional overdose [Recovered/Resolved]
  - Dissociation [Recovering/Resolving]
  - Substance-induced psychotic disorder [Recovered/Resolved]
  - Tongue disorder [Not Recovered/Not Resolved]
  - Delusion [Recovered/Resolved]
  - Product quality issue [Unknown]
  - Suicidal ideation [Not Recovered/Not Resolved]
  - Imprisonment [Recovered/Resolved]
  - Crime [Not Recovered/Not Resolved]
  - Drug use disorder [Recovered/Resolved]
  - Schizophrenia [Recovered/Resolved]
  - Toxicity to various agents [Recovered/Resolved]
  - Therapy change [Recovered/Resolved]
  - Intrusive thoughts [Recovered/Resolved]
  - Aggression [Recovering/Resolving]

NARRATIVE: CASE EVENT DATE: 2013
